FAERS Safety Report 6112886-3 (Version None)
Quarter: 2009Q1

REPORT INFORMATION
  Report Type: 
  Country: None (occurrence: None)
  Receive Date: 20090312
  Receipt Date: 20090305
  Transmission Date: 20090719
  Serious: Yes (Other)
  Sender: FDA-Public Use
  Company Number: PHHY2009DE08457

PATIENT
  Sex: Male

DRUGS (5)
  1. RASILEZ [Suspect]
     Route: 048
  2. EUCREAS [Suspect]
     Indication: DIABETES MELLITUS
     Dosage: 1 DF, BID
     Route: 048
     Dates: start: 20081218
  3. ENALAPRIL [Concomitant]
     Route: 048
  4. BISOPROLOL [Concomitant]
  5. COAPROVEL [Concomitant]
     Route: 048

REACTIONS (3)
  - BRAIN NATRIURETIC PEPTIDE INCREASED [None]
  - CARDIAC FAILURE [None]
  - DYSPNOEA [None]
